FAERS Safety Report 8269191-9 (Version None)
Quarter: 2012Q2

REPORT INFORMATION
  Report Type: 
  Country: None (occurrence: None)
  Receive Date: 20120409
  Receipt Date: 20120402
  Transmission Date: 20120825
  Serious: Yes (Other)
  Sender: FDA-Public Use
  Company Number: PHHY2011BR112476

PATIENT
  Age: 44 Year
  Sex: Female

DRUGS (1)
  1. PACLITAXEL [Suspect]
     Indication: BREAST CANCER METASTATIC

REACTIONS (9)
  - SKIN HYPERPIGMENTATION [None]
  - PARONYCHIA [None]
  - ABSCESS [None]
  - ERYTHEMA [None]
  - PAIN IN EXTREMITY [None]
  - ONYCHOLYSIS [None]
  - SKIN LESION [None]
  - BURNING SENSATION [None]
  - MACULE [None]
